FAERS Safety Report 22327806 (Version 1)
Quarter: 2023Q2

REPORT INFORMATION
  Report Type: Spontaneous
  Country: US (occurrence: US)
  Receive Date: 20230516
  Receipt Date: 20230516
  Transmission Date: 20230722
  Serious: No
  Sender: FDA-Public Use
  Company Number: US-RADIUS HEALTH INC.-2023US000622

PATIENT
  Age: 56 Year
  Sex: Female

DRUGS (1)
  1. TYMLOS [Suspect]
     Active Substance: ABALOPARATIDE
     Indication: Osteoporosis
     Dosage: 80 MCG, DAILY
     Route: 058
     Dates: start: 20230118, end: 20230118

REACTIONS (7)
  - Erythema [Unknown]
  - Chills [Unknown]
  - Anxiety [Unknown]
  - Nasal congestion [Unknown]
  - Thirst [Unknown]
  - Headache [Unknown]
  - Abdominal pain upper [Unknown]

NARRATIVE: CASE EVENT DATE: 20230118
